FAERS Safety Report 11398983 (Version 2)
Quarter: 2016Q1

REPORT INFORMATION
  Report Type: Spontaneous
  Country: US (occurrence: US)
  Receive Date: 20150820
  Receipt Date: 20160129
  Transmission Date: 20160525
  Serious: No
  Sender: FDA-Public Use
  Company Number: US-TEVA-587476USA

PATIENT
  Sex: Female
  Weight: 47.67 kg

DRUGS (2)
  1. ENJUVIA [Suspect]
     Active Substance: ESTROGENS, CONJUGATED SYNTHETIC B
     Indication: MENOPAUSE
     Dates: start: 20141213
  2. CENESTIN [Concomitant]
     Active Substance: ESTROGENS, CONJUGATED SYNTHETIC A
     Dates: start: 2001

REACTIONS (11)
  - Breast enlargement [Not Recovered/Not Resolved]
  - Feeling abnormal [Not Recovered/Not Resolved]
  - Fat tissue increased [Not Recovered/Not Resolved]
  - Oedema peripheral [Not Recovered/Not Resolved]
  - Breast discomfort [Not Recovered/Not Resolved]
  - Adverse event [Unknown]
  - Abdominal distension [Not Recovered/Not Resolved]
  - Bruxism [Not Recovered/Not Resolved]
  - Drug dose omission [Unknown]
  - Breast pain [Not Recovered/Not Resolved]
  - Anxiety [Not Recovered/Not Resolved]

NARRATIVE: CASE EVENT DATE: 2015
